FAERS Safety Report 11097965 (Version 2)
Quarter: 2015Q3

REPORT INFORMATION
  Report Type: Report from Study
  Country: US (occurrence: None)
  Receive Date: 20150428
  Receipt Date: 20150702
  Transmission Date: 20151125
  Serious: Yes (Hospitalization, Other)
  Sender: FDA-Public Use
  Company Number: 2015US002391

PATIENT
  Age: 67 Year
  Sex: Male

DRUGS (1)
  1. GLASSIA [Suspect]
     Active Substance: .ALPHA.1-PROTEINASE INHIBITOR HUMAN
     Indication: ALPHA-1 ANTI-TRYPSIN DEFICIENCY
     Dosage: 60+ 10MG, 5 VIALS WEEKLY
     Route: 042
     Dates: start: 20130715

REACTIONS (18)
  - Pneumonia [None]
  - Viral infection [None]
  - Panic attack [None]
  - Dizziness [None]
  - Hypochondriasis [None]
  - Cognitive disorder [None]
  - Memory impairment [None]
  - Discomfort [None]
  - Glycosylated haemoglobin increased [None]
  - Device related infection [None]
  - Thrombosis [None]
  - Chills [None]
  - Tinnitus [None]
  - Feeling cold [None]
  - Tremor [None]
  - Depression [None]
  - Fatigue [None]
  - Infusion related reaction [None]

NARRATIVE: CASE EVENT DATE: 20150313
